FAERS Safety Report 8558971-8 (Version None)
Quarter: 2012Q3

REPORT INFORMATION
  Report Type: 
  Country: None (occurrence: None)
  Receive Date: 20120802
  Receipt Date: 20120718
  Transmission Date: 20120928
  Serious: No
  Sender: FDA-Public Use
  Company Number: US-009507513-1207USA008235

PATIENT

DRUGS (2)
  1. COZAAR [Suspect]
     Indication: BLOOD PRESSURE
     Dosage: 100 MG, QD
     Route: 048
  2. CENESTIN [Concomitant]

REACTIONS (2)
  - BLOOD PRESSURE ABNORMAL [None]
  - DRUG INEFFECTIVE [None]
